FAERS Safety Report 25099656 (Version 1)
Quarter: 2025Q1

REPORT INFORMATION
  Report Type: Report from Study
  Country: US (occurrence: US)
  Receive Date: 20250320
  Receipt Date: 20250320
  Transmission Date: 20250409
  Serious: Yes (Death)
  Sender: EISAI
  Company Number: US-Eisai-EC-2025-185317

PATIENT
  Age: 40 Year
  Sex: Female

DRUGS (1)
  1. LENVIMA [Suspect]
     Active Substance: LENVATINIB
     Indication: Paraganglion neoplasm
     Dates: start: 202502, end: 20250309

REACTIONS (4)
  - Cerebral haemorrhage [Fatal]
  - Headache [Unknown]
  - Decreased appetite [Unknown]
  - Visual impairment [Unknown]

NARRATIVE: CASE EVENT DATE: 20250101
